FAERS Safety Report 9126883 (Version 1)
Quarter: 2013Q1

REPORT INFORMATION
  Report Type: Spontaneous
  Country: CH (occurrence: CH)
  Receive Date: 20130122
  Receipt Date: 20130122
  Transmission Date: 20140127
  Serious: Yes (Other)
  Sender: FDA-Public Use
  Company Number: CH-ASTRAZENECA-2013SE03693

PATIENT
  Age: 42 Year
  Sex: Female

DRUGS (3)
  1. SEROQUEL [Suspect]
     Route: 048
  2. SEROQUEL [Suspect]
     Route: 048
  3. CYMBALTA [Suspect]

REACTIONS (4)
  - Exposure during pregnancy [Unknown]
  - Depressed mood [Unknown]
  - Negative thoughts [Unknown]
  - Drug dose omission [Unknown]
